APPROVED DRUG PRODUCT: ESTRADIOL
Active Ingredient: ESTRADIOL
Strength: 0.05MG/24HR
Dosage Form/Route: SYSTEM;TRANSDERMAL
Application: A201675 | Product #003 | TE Code: AB1
Applicant: MYLAN TECHNOLOGIES INC
Approved: Dec 19, 2014 | RLD: No | RS: No | Type: RX